FAERS Safety Report 10338023 (Version 2)
Quarter: 2014Q3

REPORT INFORMATION
  Report Type: Spontaneous
  Country: US (occurrence: US)
  Receive Date: 20140724
  Receipt Date: 20140724
  Transmission Date: 20150326
  Serious: Yes (Hospitalization, Other)
  Sender: FDA-Public Use
  Company Number: US-009507513-2009-190801-NL

PATIENT
  Sex: Female
  Weight: 92.5 kg

DRUGS (2)
  1. NUVARING [Suspect]
     Active Substance: ETHINYL ESTRADIOL\ETONOGESTREL
     Indication: CONTRACEPTION
     Dosage: CONTINUING: NO
     Route: 067
     Dates: start: 200512, end: 200602
  2. METICORTEN [Concomitant]
     Active Substance: PREDNISONE
     Indication: COLITIS ULCERATIVE
     Dates: start: 200510, end: 200601

REACTIONS (11)
  - Pulmonary embolism [Not Recovered/Not Resolved]
  - Ileostomy [Unknown]
  - Vena cava filter insertion [Unknown]
  - Breast discharge [Unknown]
  - Vena cava filter removal [Unknown]
  - Deep vein thrombosis [Unknown]
  - Back pain [Recovered/Resolved]
  - Alopecia [Unknown]
  - Colitis ulcerative [Recovered/Resolved]
  - Ileostomy [Unknown]
  - Tubo-ovarian abscess [Recovered/Resolved]

NARRATIVE: CASE EVENT DATE: 20060128
